FAERS Safety Report 7701206 (Version 4)
Quarter: 2014Q2

REPORT INFORMATION
  Report Type: Spontaneous
  Country: US (occurrence: None)
  Receive Date: 20101115
  Receipt Date: 20140604
  Transmission Date: 20141212
  Serious: Yes (Hospitalization, Other)
  Sender: FDA-Public Use
  Company Number: JPI-P-012950

PATIENT
  Age: 59 Year
  Sex: Female
  Weight: 81.6 kg

DRUGS (6)
  1. XYREM [Suspect]
     Indication: CATAPLEXY
     Dosage: SEE IMAGE
     Route: 048
     Dates: start: 20100128, end: 20100208
  2. XYREM [Suspect]
     Indication: SOMNOLENCE
     Dosage: SEE IMAGE
     Route: 048
     Dates: start: 20100128, end: 20100208
  3. CLINDAMYCIN PHOSPHATE\TRETINOIN [Concomitant]
  4. METHADONE HYDROCHLORIDE [Concomitant]
  5. OXYCODONE HYDROCHLORIDE [Concomitant]
  6. AZELAIC ACID [Concomitant]

REACTIONS (28)
  - Abnormal dreams [None]
  - Mental impairment [None]
  - Gastritis [None]
  - Nausea [None]
  - Back pain [None]
  - Weight decreased [None]
  - Anxiety [None]
  - Depression [None]
  - Suicidal ideation [None]
  - Urine odour abnormal [None]
  - Blood urine present [None]
  - Bladder pain [None]
  - Panic attack [None]
  - Tremor [None]
  - Somnolence [None]
  - Spinal disorder [None]
  - Condition aggravated [None]
  - Initial insomnia [None]
  - Stress [None]
  - Surgery [None]
  - Intervertebral disc disorder [None]
  - Spinal fusion surgery [None]
  - Speech disorder [None]
  - Insomnia [None]
  - Tremor [None]
  - Somnolence [None]
  - Balance disorder [None]
  - Dyskinesia [None]
